FAERS Safety Report 4660643-7 (Version None)
Quarter: 2005Q2

REPORT INFORMATION
  Report Type: 
  Country: None (occurrence: None)
  Receive Date: 20050512
  Receipt Date: 20041015
  Transmission Date: 20051028
  Serious: Yes (Death, Other)
  Sender: FDA-Public Use
  Company Number: PHEH2004US11146

PATIENT
  Age: 67 Year
  Sex: Female
  Weight: 54 kg

DRUGS (3)
  1. ZOMETA [Suspect]
     Dosage: 4 MG EVERY 4 WEEKS
     Route: 042
     Dates: start: 20020701
  2. ANALGESICS [Concomitant]
  3. CHEMOTHERAPEUTICS,OTHER [Concomitant]

REACTIONS (3)
  - BONE LESION [None]
  - BREAST CANCER METASTATIC [None]
  - OSTEONECROSIS [None]
